FAERS Safety Report 8479750 (Version 6)
Quarter: 2016Q1

REPORT INFORMATION
  Report Type: Not Available
  Country: US (occurrence: US)
  Receive Date: 20120320
  Receipt Date: 20160121
  Transmission Date: 20160526
  Serious: Yes (Other)
  Sender: FDA-Public Use
  Company Number: CIP02002304

PATIENT
  Age: 79 Year
  Sex: Female
  Weight: 49.5 kg

DRUGS (5)
  1. ACTONEL [Suspect]
     Active Substance: RISEDRONATE SODIUM
     Route: 048
     Dates: start: 2004, end: 20121229
  2. ACTONEL [Suspect]
     Active Substance: RISEDRONATE SODIUM
     Route: 048
     Dates: start: 1998
  3. ACTONEL [Suspect]
     Active Substance: RISEDRONATE SODIUM
     Indication: OSTEOPOROSIS
     Route: 048
     Dates: start: 2002
  4. PREDNISONE. [Concomitant]
     Active Substance: PREDNISONE
  5. PEPCID [Concomitant]
     Active Substance: FAMOTIDINE

REACTIONS (10)
  - Abdominal discomfort [Not Recovered/Not Resolved]
  - Eructation [Recovered/Resolved]
  - Blood calcium decreased [Unknown]
  - Incorrect dose administered [None]
  - Chest pain [Recovered/Resolved]
  - Oesophageal discomfort [Unknown]
  - Asthenia [Recovered/Resolved]
  - Essential thrombocythaemia [Not Recovered/Not Resolved]
  - Dyspepsia [Recovered/Resolved]
  - Nausea [Not Recovered/Not Resolved]

NARRATIVE: CASE EVENT DATE: 20021028
